FAERS Safety Report 10885457 (Version 1)
Quarter: 2015Q1

REPORT INFORMATION
  Report Type: Spontaneous
  Country: EG (occurrence: EG)
  Receive Date: 20150304
  Receipt Date: 20150304
  Transmission Date: 20150721
  Serious: Yes (Death)
  Sender: FDA-Public Use
  Company Number: EG-PFIZER INC-2015075744

PATIENT

DRUGS (1)
  1. CAMPTO [Suspect]
     Active Substance: IRINOTECAN

REACTIONS (3)
  - Death [Fatal]
  - White blood cell count decreased [Unknown]
  - Mucosal inflammation [Unknown]
